FAERS Safety Report 16700308 (Version 2)
Quarter: 2019Q3

REPORT INFORMATION
  Report Type: Spontaneous
  Country: PL (occurrence: PL)
  Receive Date: 20190814
  Receipt Date: 20190821
  Transmission Date: 20191004
  Serious: Yes (Hospitalization, Other)
  Sender: FDA-Public Use
  Company Number: PL-UCBSA-2019033668

PATIENT
  Age: 6 Year
  Sex: Female

DRUGS (22)
  1. DIAZEPAM. [Suspect]
     Active Substance: DIAZEPAM
     Indication: FRONTAL LOBE EPILEPSY
     Dosage: USED DURING THE ADMISSION BEFORE LIDOCAINE INFUSION
  2. LAMOTRIGINE. [Suspect]
     Active Substance: LAMOTRIGINE
     Indication: FRONTAL LOBE EPILEPSY
     Dosage: UNKNOWN DOSE
  3. PHENOBARBITAL. [Suspect]
     Active Substance: PHENOBARBITAL
     Dosage: UNKNOWN DOSE
  4. TETRACOSACTIDE [Suspect]
     Active Substance: COSYNTROPIN
     Indication: FRONTAL LOBE EPILEPSY
     Dosage: UNKNOWN DOSE
     Route: 030
  5. VIGABATRIN. [Suspect]
     Active Substance: VIGABATRIN
     Indication: FRONTAL LOBE EPILEPSY
     Dosage: UNKNOWN DOSE
  6. VIMPAT [Suspect]
     Active Substance: LACOSAMIDE
     Indication: FRONTAL LOBE EPILEPSY
     Dosage: UNKNOWN DOSE
  7. KEPPRA [Suspect]
     Active Substance: LEVETIRACETAM
     Dosage: UNKNOWN DOSE
  8. OXCARBAZEPINE. [Suspect]
     Active Substance: OXCARBAZEPINE
     Indication: FRONTAL LOBE EPILEPSY
     Dosage: UNKNOWN DOSE
  9. VALPROIC ACID. [Suspect]
     Active Substance: VALPROIC ACID
     Indication: FRONTAL LOBE EPILEPSY
     Dosage: UNKNOWN DOSE
  10. CLONAZEPAM. [Suspect]
     Active Substance: CLONAZEPAM
     Indication: FRONTAL LOBE EPILEPSY
     Dosage: USED DURING THE ADMISSION BEFORE LIDOCAINE INFUSION
     Route: 042
  11. CARBAMAZEPINE. [Suspect]
     Active Substance: CARBAMAZEPINE
     Indication: FRONTAL LOBE EPILEPSY
     Dosage: USED DURING THE ADMISSION BEFORE LIDOCAINE INFUSION, UNKNOWN DOSE
     Route: 048
  12. CLOBAZAM. [Suspect]
     Active Substance: CLOBAZAM
     Indication: FRONTAL LOBE EPILEPSY
     Dosage: UNKNOWN DOSE
  13. PHENYTOIN. [Suspect]
     Active Substance: PHENYTOIN
     Indication: FRONTAL LOBE EPILEPSY
     Dosage: UNKNOWN DOSE
     Route: 042
  14. PHENYTOIN. [Suspect]
     Active Substance: PHENYTOIN
     Dosage: UNKNOWN DOSE
     Route: 048
  15. PHENOBARBITAL. [Suspect]
     Active Substance: PHENOBARBITAL
     Indication: FRONTAL LOBE EPILEPSY
     Dosage: USED DURING THE ADMISSION BEFORE LIDOCAINE INFUSION
  16. TOPIRAMATE. [Suspect]
     Active Substance: TOPIRAMATE
     Indication: FRONTAL LOBE EPILEPSY
     Dosage: USED DURING THE ADMISSION BEFORE LIDOCAINE INFUSION
  17. TOPIRAMATE. [Suspect]
     Active Substance: TOPIRAMATE
     Dosage: UNKNOWN DOSE
  18. IMMUNOGLOBULIN HUMAN [Concomitant]
     Active Substance: HUMAN IMMUNOGLOBULIN G
     Indication: FRONTAL LOBE EPILEPSY
     Dosage: UNKNOWN DOSE
     Route: 042
  19. KEPPRA [Suspect]
     Active Substance: LEVETIRACETAM
     Indication: FRONTAL LOBE EPILEPSY
     Dosage: USED DURING THE ADMISSION BEFORE LIDOCAINE INFUSION, UNKNOWN DOSE
     Route: 048
  20. KEPPRA [Suspect]
     Active Substance: LEVETIRACETAM
     Dosage: INTRODUCED AT THE END OF LIDOCAINE INFUSION
  21. CARBAMAZEPINE. [Suspect]
     Active Substance: CARBAMAZEPINE
     Dosage: UNKNOWN DOSE
  22. PHENYTOIN. [Suspect]
     Active Substance: PHENYTOIN
     Dosage: INTRODUCED AT THE END OF LIDOCAINE INFUSION
     Route: 048

REACTIONS (3)
  - Status epilepticus [Unknown]
  - Seizure cluster [Recovering/Resolving]
  - Multiple-drug resistance [Unknown]
